FAERS Safety Report 17108894 (Version 1)
Quarter: 2019Q4

REPORT INFORMATION
  Report Type: Spontaneous
  Country: US (occurrence: US)
  Receive Date: 20191203
  Receipt Date: 20191203
  Transmission Date: 20200122
  Serious: No
  Sender: FDA-Public Use
  Company Number: US-PURDUE-USA-2019-0149040

PATIENT
  Age: 10 Year
  Sex: Male

DRUGS (1)
  1. ADHANSIA XR [Suspect]
     Active Substance: METHYLPHENIDATE HYDROCHLORIDE
     Indication: PRODUCT USED FOR UNKNOWN INDICATION
     Dosage: 45 MG, SINGLE
     Route: 048

REACTIONS (4)
  - Vision blurred [Unknown]
  - Headache [Unknown]
  - Abdominal pain upper [Unknown]
  - Dyssomnia [Unknown]
